FAERS Safety Report 12991330 (Version 1)
Quarter: 2016Q4

REPORT INFORMATION
  Report Type: Not Available
  Country: CA (occurrence: CA)
  Receive Date: 20161201
  Receipt Date: 20161201
  Transmission Date: 20170207
  Serious: Yes (Hospitalization)
  Sender: FDA-Public Use
  Company Number: CA-PURDUE PHARMA-CAN-2016-0007231

PATIENT
  Age: 53 Year
  Sex: Female

DRUGS (12)
  1. DEXILANT [Suspect]
     Active Substance: DEXLANSOPRAZOLE
     Indication: PRODUCT USED FOR UNKNOWN INDICATION
     Dosage: 60 MG, DAILY
     Route: 065
  2. BIFIDOBACTERIUM LONGUM [Concomitant]
     Active Substance: BIFIDOBACTERIUM LONGUM
     Indication: PRODUCT USED FOR UNKNOWN INDICATION
     Dosage: UNK, DAILY
     Route: 065
  3. CALCIUM [Concomitant]
     Active Substance: CALCIUM
     Indication: PRODUCT USED FOR UNKNOWN INDICATION
     Dosage: 500 MG, DAILY
     Route: 065
  4. PREDNISONE. [Concomitant]
     Active Substance: PREDNISONE
     Indication: PRODUCT USED FOR UNKNOWN INDICATION
     Dosage: 40 MG, DAILY
     Route: 065
  5. DILAUDID [Suspect]
     Active Substance: HYDROMORPHONE HYDROCHLORIDE
     Indication: PRODUCT USED FOR UNKNOWN INDICATION
     Dosage: UNK
     Route: 065
  6. GRAVOL [Concomitant]
     Active Substance: DIMENHYDRINATE
     Indication: PRODUCT USED FOR UNKNOWN INDICATION
     Dosage: UNK, DAILY
     Route: 065
  7. CLONAZEPAM. [Concomitant]
     Active Substance: CLONAZEPAM
     Indication: PRODUCT USED FOR UNKNOWN INDICATION
     Dosage: 0.5 MG, UNK
     Route: 065
  8. VEDOLIZUMAB [Suspect]
     Active Substance: VEDOLIZUMAB
     Indication: COLITIS ULCERATIVE
     Dosage: 300 MG, 1 EVERY 8 WEEKS
     Route: 042
  9. POLYSACCHARIDE-IRON COMPLEX [Concomitant]
     Indication: PRODUCT USED FOR UNKNOWN INDICATION
     Dosage: UNK, BID
     Route: 065
  10. ACETAMINOPHEN. [Concomitant]
     Active Substance: ACETAMINOPHEN
     Indication: PRODUCT USED FOR UNKNOWN INDICATION
     Dosage: UNK, DAILY
     Route: 065
  11. VITAMIN D3 [Concomitant]
     Active Substance: CHOLECALCIFEROL
     Indication: PRODUCT USED FOR UNKNOWN INDICATION
     Dosage: 1000 IU, DAILY
     Route: 065
  12. MEZAVANT [Concomitant]
     Active Substance: MESALAMINE
     Indication: PRODUCT USED FOR UNKNOWN INDICATION
     Dosage: 1.2 G, DAILY
     Route: 065

REACTIONS (12)
  - Clostridium difficile infection [Recovering/Resolving]
  - Haematochezia [Recovering/Resolving]
  - Hot flush [Recovering/Resolving]
  - Abdominal pain [Recovering/Resolving]
  - Abdominal pain upper [Recovering/Resolving]
  - Asthenia [Recovering/Resolving]
  - Nausea [Recovering/Resolving]
  - Pollakiuria [Recovering/Resolving]
  - Tremor [Recovering/Resolving]
  - Diarrhoea [Recovering/Resolving]
  - Drug ineffective [Recovering/Resolving]
  - Vomiting [Recovering/Resolving]
